FAERS Safety Report 10708011 (Version 2)
Quarter: 2015Q1

REPORT INFORMATION
  Report Type: Spontaneous
  Country: US (occurrence: US)
  Receive Date: 20150113
  Receipt Date: 20150312
  Transmission Date: 20150721
  Serious: Yes (Death, Hospitalization)
  Sender: FDA-Public Use
  Company Number: US-PFIZER INC-2015008965

PATIENT
  Age: 71 Year
  Sex: Male
  Weight: 96 kg

DRUGS (1)
  1. INLYTA [Suspect]
     Active Substance: AXITINIB
     Indication: RENAL CELL CARCINOMA
     Dosage: 5 MG, 2X/DAY
     Route: 048
     Dates: start: 20141002, end: 20150123

REACTIONS (10)
  - Epistaxis [Unknown]
  - Stomatitis [Unknown]
  - Hypertension [Unknown]
  - Renal cell carcinoma [Unknown]
  - Fatigue [Unknown]
  - Pneumonia aspiration [Fatal]
  - Disease progression [Unknown]
  - Weight decreased [Unknown]
  - Fall [Unknown]
  - Hypersomnia [Unknown]

NARRATIVE: CASE EVENT DATE: 201412
